FAERS Safety Report 9624197 (Version 5)
Quarter: 2013Q4

REPORT INFORMATION
  Report Type: Report from Study
  Country: US (occurrence: US)
  Receive Date: 20131015
  Receipt Date: 20131121
  Transmission Date: 20140711
  Serious: Yes (Hospitalization)
  Sender: FDA-Public Use
  Company Number: US-ACTELION-A-US2013-88219

PATIENT
  Age: 9 Year
  Sex: Male

DRUGS (15)
  1. TRACLEER [Suspect]
     Indication: PULMONARY ARTERIAL HYPERTENSION
     Dosage: 31.25 MG, BID
     Route: 048
  2. NEUPOGEN [Suspect]
     Dosage: 37 UNK, UNK
  3. SILDENAFIL [Concomitant]
     Dosage: 30 MG, QID
  4. TYVASO [Concomitant]
     Dosage: 9 PUFF, QID
  5. DIURIL [Concomitant]
     Dosage: 500 MG, OD
     Route: 048
  6. BACTRIM [Concomitant]
  7. LOVENOX [Concomitant]
  8. FERROUS SULFATE [Concomitant]
     Dosage: 325 MG, Q1WEEK
  9. VALCYTE [Concomitant]
  10. PROGRAF [Concomitant]
  11. LASIX [Concomitant]
     Dosage: 20 MG, UNK
  12. MAGNESIUM [Concomitant]
  13. POTASSIUM CHLORIDE [Concomitant]
  14. URSODIOL [Concomitant]
     Dosage: 300 MG, BID
  15. MEPRON [Concomitant]
     Dosage: 5.4 ML, UNK

REACTIONS (20)
  - Pharyngitis streptococcal [Recovering/Resolving]
  - Adverse drug reaction [Unknown]
  - Vomiting [Unknown]
  - Respiratory distress [Unknown]
  - Oxygen saturation decreased [Unknown]
  - Gastric fistula [Unknown]
  - Fistula repair [Unknown]
  - Post transplant lymphoproliferative disorder [Unknown]
  - Immune thrombocytopenic purpura [Unknown]
  - Immune thrombocytopenic purpura [Unknown]
  - Splenomegaly [Unknown]
  - Blood potassium increased [Unknown]
  - Neutropenia [Unknown]
  - Viral upper respiratory tract infection [Recovering/Resolving]
  - Dyspnoea [Recovering/Resolving]
  - Cyanosis [Recovering/Resolving]
  - Pyrexia [Recovering/Resolving]
  - Pulmonary arterial pressure increased [Unknown]
  - Chest pain [Recovered/Resolved]
  - Back pain [Recovered/Resolved]
